FAERS Safety Report 8558637-4 (Version None)
Quarter: 2012Q3

REPORT INFORMATION
  Report Type: 
  Country: None (occurrence: None)
  Receive Date: 20120801
  Receipt Date: 20120724
  Transmission Date: 20120928
  Serious: Yes (Death, Hospitalization, Other)
  Sender: FDA-Public Use
  Company Number: US-CELGENEUS-163-21880-12040823

PATIENT
  Sex: Male
  Weight: 79.904 kg

DRUGS (31)
  1. BUMETANIDE [Concomitant]
     Dosage: 2 MILLIGRAM
     Route: 048
  2. PREDNISONE [Concomitant]
     Dosage: 20 MILLIGRAM
     Route: 048
  3. SORBITOL 50PC INJ [Concomitant]
     Indication: CONSTIPATION
     Dosage: 30 MILLILITER
     Route: 065
     Dates: start: 20120601
  4. DEXAMETHASONE [Concomitant]
     Indication: MULTIPLE MYELOMA
     Dosage: 5.7143 MILLIGRAM
     Route: 048
     Dates: start: 20120401
  5. SENNA-MINT WAF [Concomitant]
     Dosage: 15 MILLIGRAM
     Route: 048
  6. MORPHINE SULFATE [Concomitant]
     Indication: PAIN
     Dosage: 15 MILLIGRAM
     Route: 048
  7. PAMIDRONATE DISODIUM [Concomitant]
     Route: 065
  8. AVELOX [Concomitant]
     Dosage: 400 MILLIGRAM
     Route: 048
  9. CALCIUM [Concomitant]
     Dosage: 500 MILLIGRAM
     Route: 048
  10. KLOR-CON [Concomitant]
     Dosage: 20 MILLIEQUIVALENTS
     Route: 048
  11. LORAZEPAM [Concomitant]
     Indication: ANXIETY
     Dosage: .5 MILLIGRAM
     Route: 048
  12. MILK OF MAGNESIA TAB [Concomitant]
     Route: 048
  13. LASIX [Concomitant]
     Dosage: 20 MILLIGRAM
     Route: 041
     Dates: start: 20120508
  14. REVLIMID [Suspect]
     Dosage: 15 MILLIGRAM
     Route: 048
     Dates: start: 20120416, end: 20120508
  15. BACLOFEN [Concomitant]
     Dosage: 30 MILLIGRAM
     Route: 048
  16. CARTIA XT [Concomitant]
     Dosage: 240 MILLIGRAM
     Route: 048
  17. PROCHLORPERAZINE MALEATE [Concomitant]
     Indication: NAUSEA
     Dosage: 10 MILLIGRAM
     Route: 048
  18. SULFAMETHOXAZOLE AND TRIMETHOPRIM [Concomitant]
     Dosage: 800-160MG
     Route: 048
  19. REVLIMID [Suspect]
     Dosage: 10 MILLIGRAM
     Route: 048
     Dates: start: 20120515
  20. ENSURE [Concomitant]
     Dosage: 1 DOSAGE FORMS
     Route: 048
  21. MORPHINE SULFATE [Concomitant]
     Dosage: 30 MILLIGRAM
     Route: 048
  22. PANTOPRAZOLE SODIUM [Concomitant]
     Dosage: 40 MILLIGRAM
     Route: 048
  23. VITAMIN D [Concomitant]
     Dosage: 400 UNIT
     Route: 048
  24. TRANSFUSION [Concomitant]
     Route: 041
     Dates: start: 20120430, end: 20120430
  25. REVLIMID [Suspect]
     Indication: MULTIPLE MYELOMA
     Dosage: 18.75 MILLIGRAM
     Route: 048
     Dates: start: 20120301, end: 20120322
  26. REVLIMID [Suspect]
     Dosage: 18.75 MILLIGRAM
     Route: 048
     Dates: start: 20120329, end: 20120402
  27. PROAIR HFA [Concomitant]
     Dosage: 90 MCG, 1 INHALATION
     Route: 055
  28. TORSEMIDE [Concomitant]
     Dosage: 20 MILLIGRAM
     Route: 048
  29. IBUPROFEN [Concomitant]
     Indication: CHEST PAIN
     Dosage: UP TO 1600MG
     Route: 065
     Dates: start: 20120101
  30. PRBC [Concomitant]
     Dosage: 2 UNITS
     Route: 041
     Dates: start: 20120508
  31. TYLENOL (CAPLET) [Concomitant]
     Dosage: 650 MILLIGRAM
     Route: 048
     Dates: start: 20120508

REACTIONS (5)
  - DEATH [None]
  - HAEMOGLOBIN DECREASED [None]
  - NEUTROPHIL COUNT DECREASED [None]
  - THROMBOCYTOPENIA [None]
  - FEBRILE NEUTROPENIA [None]
